FAERS Safety Report 8594201-9 (Version None)
Quarter: 2012Q3

REPORT INFORMATION
  Report Type: 
  Country: None (occurrence: None)
  Receive Date: 20120814
  Receipt Date: 20120809
  Transmission Date: 20120928
  Serious: Yes (Hospitalization)
  Sender: FDA-Public Use
  Company Number: JP-009507513-1112USA00682

PATIENT

DRUGS (10)
  1. JANUVIA [Suspect]
     Indication: TYPE 2 DIABETES MELLITUS
     Dosage: 50 MG, QD
     Route: 048
     Dates: start: 20111021, end: 20111103
  2. CRESTOR [Suspect]
     Dosage: 2.5 MG, QD
     Route: 048
     Dates: start: 20111201
  3. OLMESARTAN MEDOXOMIL [Suspect]
     Dosage: UNK
  4. CRESTOR [Suspect]
     Indication: DYSLIPIDAEMIA
     Dosage: 2.5 MG, QD
     Route: 048
     Dates: start: 20080514, end: 20111103
  5. CRESTOR [Suspect]
     Dosage: UNK
  6. CALBLOCK [Suspect]
     Indication: HYPERTENSION
     Dosage: 16 MG, QD
     Route: 048
     Dates: start: 20090219, end: 20111103
  7. LEVEMIR [Suspect]
     Indication: TYPE 2 DIABETES MELLITUS
     Dosage: 8 IU, QD
     Route: 058
     Dates: start: 20080502, end: 20111112
  8. NOVORAPID [Suspect]
     Indication: TYPE 2 DIABETES MELLITUS
     Dosage: 4 IU, TID
     Route: 058
     Dates: start: 20080502, end: 20111112
  9. OLMESARTAN MEDOXOMIL [Suspect]
     Indication: HYPERTENSION
     Dosage: 20 MG, QD
     Route: 048
     Dates: start: 20080512, end: 20111103
  10. OLMESARTAN MEDOXOMIL [Suspect]
     Dosage: 20 MG, QD
     Route: 048
     Dates: start: 20111201

REACTIONS (2)
  - DRUG ERUPTION [None]
  - ATRIAL FIBRILLATION [None]
